FAERS Safety Report 7828228-9 (Version None)
Quarter: 2011Q4

REPORT INFORMATION
  Report Type: 
  Country: None (occurrence: None)
  Receive Date: 20111020
  Receipt Date: 20111020
  Transmission Date: 20120403
  Serious: Yes (Disabling)
  Sender: FDA-Public Use
  Company Number: None

PATIENT
  Sex: Female
  Weight: 47.6277 kg

DRUGS (1)
  1. AVASTIN [Suspect]
     Dosage: DR. INJECTION ONE

REACTIONS (2)
  - VISUAL IMPAIRMENT [None]
  - CONDITION AGGRAVATED [None]
